FAERS Safety Report 20946268 (Version 1)
Quarter: 2022Q2

REPORT INFORMATION
  Report Type: Spontaneous
  Country: US (occurrence: US)
  Receive Date: 20220610
  Receipt Date: 20220610
  Transmission Date: 20220721
  Serious: Yes (Other)
  Sender: FDA-Public Use
  Company Number: US-REGENERON PHARMACEUTICALS, INC.-2022-22022

PATIENT
  Sex: Male

DRUGS (2)
  1. EYLEA [Suspect]
     Active Substance: AFLIBERCEPT
     Indication: Neovascular age-related macular degeneration
     Dosage: UNK, LEFT EYE, ONCE A MONTH; FORMULATION: PREFILLED SYRINGE
     Dates: start: 20200828
  2. EYLEA [Suspect]
     Active Substance: AFLIBERCEPT
     Indication: Myopic chorioretinal degeneration

REACTIONS (3)
  - Endophthalmitis [Recovered/Resolved]
  - Off label use [Unknown]
  - Visual acuity reduced [Unknown]

NARRATIVE: CASE EVENT DATE: 20200828
